FAERS Safety Report 20013807 (Version 4)
Quarter: 2022Q1

REPORT INFORMATION
  Report Type: Spontaneous
  Country: DE (occurrence: DE)
  Receive Date: 20211029
  Receipt Date: 20220118
  Transmission Date: 20220424
  Serious: Yes (Hospitalization, Other)
  Sender: FDA-Public Use
  Company Number: DE-BRISTOL-MYERS SQUIBB COMPANY-BMS-2021-083361

PATIENT
  Age: 63 Year
  Sex: Male
  Weight: 79 kg

DRUGS (7)
  1. IPILIMUMAB [Suspect]
     Active Substance: IPILIMUMAB
     Indication: Metastatic malignant melanoma
     Dosage: 1 MILLIGRAM/KILOGRAM, Q3WK;4 APPLICATIONS
     Route: 042
     Dates: start: 20190527, end: 20190708
  2. IPILIMUMAB [Suspect]
     Active Substance: IPILIMUMAB
     Dosage: 1 MILLIGRAM/KILOGRAM, Q3WK;4 APPLICATIONS
     Route: 042
     Dates: start: 20190717, end: 20190808
  3. PEMBROLIZUMAB [Suspect]
     Active Substance: PEMBROLIZUMAB
     Indication: Metastatic malignant melanoma
     Dosage: 200 MILLIGRAM, Q3WK
     Route: 042
     Dates: start: 20170227, end: 20170410
  4. PEMBROLIZUMAB [Suspect]
     Active Substance: PEMBROLIZUMAB
     Dosage: 200 MILLIGRAM, Q3WK
     Route: 042
     Dates: start: 20180820, end: 20190507
  5. PEMBROLIZUMAB [Suspect]
     Active Substance: PEMBROLIZUMAB
     Dosage: 200 MILLIGRAM, Q3WK
     Route: 042
     Dates: start: 20190527, end: 20190708
  6. PEMBROLIZUMAB [Suspect]
     Active Substance: PEMBROLIZUMAB
     Dosage: 200 MILLIGRAM, Q3WK
     Route: 042
     Dates: start: 20190717, end: 20190808
  7. PEMBROLIZUMAB [Suspect]
     Active Substance: PEMBROLIZUMAB
     Dosage: 200 MILLIGRAM, Q3WK
     Route: 042
     Dates: start: 2019, end: 20191030

REACTIONS (3)
  - Transaminases increased [Unknown]
  - Immune-mediated enterocolitis [Unknown]
  - Intentional product use issue [Unknown]

NARRATIVE: CASE EVENT DATE: 20170101
